FAERS Safety Report 8853036 (Version 1)
Quarter: 2012Q4

REPORT INFORMATION
  Report Type: 
  Country: BR (occurrence: BR)
  Receive Date: 20121022
  Receipt Date: 20121022
  Transmission Date: 20130627
  Serious: Yes (Hospitalization, Other)
  Sender: FDA-Public Use
  Company Number: BR-ASTRAZENECA-2012SE27413

PATIENT
  Age: 85 Year
  Sex: Male

DRUGS (4)
  1. NEXIUM [Suspect]
     Indication: GASTRITIS PROPHYLAXIS
     Route: 048
     Dates: start: 201104
  2. UNKNOWN MEDICATION [Concomitant]
     Indication: THYROID DISORDER
     Dates: start: 201104
  3. UNSPECIFIED MEDICATION [Concomitant]
     Indication: BLOOD CHOLESTEROL ABNORMAL
     Dates: start: 201104
  4. UNKNOWN DRUG [Concomitant]
     Indication: BLOOD TRIGLYCERIDES ABNORMAL
     Dates: start: 201104

REACTIONS (1)
  - Arterial occlusive disease [Recovered/Resolved]
